FAERS Safety Report 17143391 (Version 1)
Quarter: 2019Q4

REPORT INFORMATION
  Report Type: Spontaneous
  Country: PL (occurrence: PL)
  Receive Date: 20191212
  Receipt Date: 20191212
  Transmission Date: 20200122
  Serious: Yes (Hospitalization, Other)
  Sender: FDA-Public Use
  Company Number: PL-MYLANLABS-2019M1120394

PATIENT

DRUGS (1)
  1. TICLOPIDINE [Suspect]
     Active Substance: TICLOPIDINE
     Indication: CORONARY ARTERY DISEASE
     Dosage: UNK
     Route: 065

REACTIONS (26)
  - Acute kidney injury [Recovered/Resolved]
  - Blood creatinine increased [Unknown]
  - Dysphagia [Unknown]
  - Asthenia [Unknown]
  - Abdominal pain upper [Unknown]
  - Hyperpyrexia [Unknown]
  - Anuria [Unknown]
  - Dyspnoea [Unknown]
  - Tremor [Unknown]
  - Neurological symptom [Unknown]
  - Bedridden [Unknown]
  - Rash [Unknown]
  - Thrombotic thrombocytopenic purpura [Recovering/Resolving]
  - Sinus tachycardia [Unknown]
  - Nausea [Unknown]
  - Condition aggravated [Unknown]
  - Hypertension [Unknown]
  - Vomiting [Unknown]
  - Apathy [Unknown]
  - Monoparesis [Unknown]
  - Slow speech [Unknown]
  - Thrombocytopenia [Recovered/Resolved]
  - Diarrhoea [Unknown]
  - Aphasia [Unknown]
  - Altered state of consciousness [Unknown]
  - Haemolytic anaemia [Recovering/Resolving]
